FAERS Safety Report 13530904 (Version 2)
Quarter: 2020Q2

REPORT INFORMATION
  Report Type: Report from Study
  Country: US (occurrence: US)
  Receive Date: 20170510
  Receipt Date: 20200611
  Transmission Date: 20200713
  Serious: Yes (Other)
  Sender: FDA-Public Use
  Company Number: US-ROCHE-1929785

PATIENT

DRUGS (3)
  1. TUCATINIB [Suspect]
     Active Substance: TUCATINIB
     Indication: BREAST CANCER METASTATIC
     Dosage: 21-DAY CYCLE
     Route: 048
  2. TRASTUZUMAB. [Suspect]
     Active Substance: TRASTUZUMAB
     Indication: BREAST CANCER METASTATIC
     Dosage: LOADING DOSE
     Route: 042
  3. TRASTUZUMAB. [Suspect]
     Active Substance: TRASTUZUMAB
     Route: 042

REACTIONS (12)
  - Alanine aminotransferase increased [Unknown]
  - Diarrhoea [Unknown]
  - Decreased appetite [Unknown]
  - Dysarthria [Unknown]
  - Blood bilirubin increased [Unknown]
  - Hemiparesis [Unknown]
  - Rash maculo-papular [Unknown]
  - Platelet count decreased [Unknown]
  - Anaemia [Unknown]
  - Aspartate aminotransferase increased [Unknown]
  - Muscular weakness [Unknown]
  - Pruritus [Unknown]
